FAERS Safety Report 7913420-5 (Version None)
Quarter: 2011Q4

REPORT INFORMATION
  Report Type: 
  Country: None (occurrence: None)
  Receive Date: 20111115
  Receipt Date: 20111108
  Transmission Date: 20120403
  Serious: Yes (Hospitalization)
  Sender: FDA-Public Use
  Company Number: US-BIOGENIDEC-2011BI041164

PATIENT
  Age: 61 Year
  Sex: Female

DRUGS (2)
  1. AVONEX [Suspect]
     Indication: MULTIPLE SCLEROSIS
     Route: 030
     Dates: start: 20001111
  2. AVONEX [Suspect]
     Route: 030

REACTIONS (7)
  - PAIN IN EXTREMITY [None]
  - MALAISE [None]
  - BREAST CALCIFICATIONS [None]
  - WEIGHT DECREASED [None]
  - DECREASED APPETITE [None]
  - BENIGN OVARIAN TUMOUR [None]
  - COMPUTERISED TOMOGRAM ABNORMAL [None]
